FAERS Safety Report 7973866-6 (Version None)
Quarter: 2011Q4

REPORT INFORMATION
  Report Type: 
  Country: None (occurrence: None)
  Receive Date: 20111209
  Receipt Date: 20111203
  Transmission Date: 20120403
  Serious: Yes (Hospitalization, Other)
  Sender: FDA-Public Use
  Company Number: AUR-APL-2011-06011

PATIENT
  Age: 36 Year
  Sex: Female
  Weight: 49 kg

DRUGS (4)
  1. METFORMIN HCL [Suspect]
     Indication: PRODUCT USED FOR UNKNOWN INDICATION
     Dosage: 3000 MG (1000 MG, 3 IN 1 D)
  2. BISACODYL [Suspect]
     Indication: LAXATIVE SUPPORTIVE CARE
     Dosage: 1 D
  3. AMILORIDE HCL AND HYDROCHLOROTHIAZIDE [Suspect]
     Indication: PRODUCT USED FOR UNKNOWN INDICATION
     Dosage: 50/5MG (1 D)
  4. LEVOTHYROXINE SODIUM [Suspect]
     Indication: PRODUCT USED FOR UNKNOWN INDICATION
     Dosage: 100 MC,G 1 D

REACTIONS (16)
  - BLOOD PRESSURE DECREASED [None]
  - RENAL FAILURE [None]
  - DEHYDRATION [None]
  - OEDEMA PERIPHERAL [None]
  - SELF-INDUCED VOMITING [None]
  - OVERDOSE [None]
  - DRUG ABUSE [None]
  - LACTIC ACIDOSIS [None]
  - ALOPECIA [None]
  - HYPONATRAEMIA [None]
  - HYPOKALAEMIA [None]
  - EATING DISORDER [None]
  - DECREASED APPETITE [None]
  - INTENTIONAL DRUG MISUSE [None]
  - HEART RATE INCREASED [None]
  - CONSTIPATION [None]
